FAERS Safety Report 9279051 (Version 1)
Quarter: 2013Q2

REPORT INFORMATION
  Report Type: Spontaneous
  Country: US (occurrence: US)
  Receive Date: 20130508
  Receipt Date: 20130508
  Transmission Date: 20140414
  Serious: Yes (Disabling, Other)
  Sender: FDA-Public Use
  Company Number: US-BAYER-2013-055140

PATIENT
  Sex: Female

DRUGS (1)
  1. CIPROFLOXACIN [Suspect]
     Dosage: UNK
     Dates: start: 2000

REACTIONS (7)
  - Retinal detachment [None]
  - Blindness [None]
  - Immobile [None]
  - Disability [None]
  - Balance disorder [None]
  - Pain [None]
  - Injury [None]
